FAERS Safety Report 13252989 (Version 1)
Quarter: 2017Q1

REPORT INFORMATION
  Report Type: Spontaneous
  Country: US (occurrence: US)
  Receive Date: 20170220
  Receipt Date: 20170220
  Transmission Date: 20170428
  Serious: No
  Sender: FDA-Public Use
  Company Number: US-ACADIA PHARMACEUTICALS INC.-ACA-2016-001454

PATIENT
  Age: 84 Year
  Sex: Female
  Weight: 51.7 kg

DRUGS (3)
  1. NUPLAZID [Suspect]
     Active Substance: PIMAVANSERIN TARTRATE
     Indication: DELUSION
  2. NUPLAZID [Suspect]
     Active Substance: PIMAVANSERIN TARTRATE
     Indication: HALLUCINATION
     Dosage: 34 MG, QD
     Route: 065
     Dates: start: 20161116, end: 201611
  3. NUPLAZID [Suspect]
     Active Substance: PIMAVANSERIN TARTRATE
     Indication: PARKINSON^S DISEASE PSYCHOSIS

REACTIONS (10)
  - Irritability [Recovering/Resolving]
  - Poor quality sleep [Unknown]
  - Aggression [Recovering/Resolving]
  - Somnolence [Unknown]
  - Condition aggravated [Unknown]
  - Agitation [Unknown]
  - Restlessness [Unknown]
  - Fall [Unknown]
  - Abnormal behaviour [Unknown]
  - Hypokinesia [Unknown]

NARRATIVE: CASE EVENT DATE: 2016
